FAERS Safety Report 7910116-0 (Version None)
Quarter: 2011Q4

REPORT INFORMATION
  Report Type: 
  Country: None (occurrence: None)
  Receive Date: 20111111
  Receipt Date: 20111102
  Transmission Date: 20120403
  Serious: Yes (Other)
  Sender: FDA-Public Use
  Company Number: CHPA2011US09551

PATIENT
  Age: 49 Year
  Sex: Female

DRUGS (3)
  1. NICOTINE [Suspect]
     Indication: SMOKING CESSATION THERAPY
     Dosage: 14 MG, QD
     Route: 062
  2. NICOTINE [Suspect]
     Dosage: 21 MG, QD
     Route: 062
     Dates: start: 20110709
  3. DRUG THERAPY NOS [Concomitant]

REACTIONS (7)
  - HOMICIDAL IDEATION [None]
  - FEAR [None]
  - EMOTIONAL DISTRESS [None]
  - FEELING ABNORMAL [None]
  - MEMORY IMPAIRMENT [None]
  - MALAISE [None]
  - ABNORMAL DREAMS [None]
